FAERS Safety Report 10576152 (Version 1)
Quarter: 2014Q4

REPORT INFORMATION
  Report Type: Spontaneous
  Country: US (occurrence: None)
  Receive Date: 20141110
  Receipt Date: 20141110
  Transmission Date: 20150529
  Serious: Yes (Life-Threatening, Hospitalization)
  Sender: FDA-Public Use
  Company Number: None

PATIENT
  Age: 35 Year
  Sex: Female
  Weight: 48.08 kg

DRUGS (4)
  1. HYDROCODONE [Concomitant]
     Active Substance: HYDROCODONE
  2. RITUXAN [Suspect]
     Active Substance: RITUXIMAB
     Indication: RHEUMATOID ARTHRITIS
     Dosage: 1000MG  ON DAY 0 AND DAY 1  INTRAVENOUS
     Route: 042
     Dates: start: 20141105, end: 20141106
  3. RITUXAN [Suspect]
     Active Substance: RITUXIMAB
     Indication: RHEUMATOID ARTHRITIS
     Dosage: 1000MG  ON DAY 0 AND 14  INTRAVENOUS
     Route: 042
     Dates: start: 20141106, end: 20141106
  4. PREDNISONE. [Concomitant]
     Active Substance: PREDNISONE

REACTIONS (3)
  - Dysphagia [None]
  - Throat tightness [None]
  - Dyspnoea [None]

NARRATIVE: CASE EVENT DATE: 20141106
